FAERS Safety Report 4514064-8 (Version None)
Quarter: 2004Q4

REPORT INFORMATION
  Report Type: 
  Country: None (occurrence: None)
  Receive Date: 20041130
  Receipt Date: 20041119
  Transmission Date: 20050328
  Serious: Yes (Death)
  Sender: FDA-Public Use
  Company Number: FR-GLAXOSMITHKLINE-B0357648A

PATIENT
  Age: 73 Year
  Sex: Female

DRUGS (11)
  1. DEROXAT [Suspect]
     Indication: DEPRESSION
     Route: 048
  2. SINGULAIR [Suspect]
     Indication: BRONCHITIS CHRONIC
     Route: 048
  3. PLAVIX [Suspect]
     Route: 048
     Dates: end: 20040926
  4. SPIRONOLACTONE [Concomitant]
     Indication: ESSENTIAL HYPERTENSION
     Route: 048
  5. EUPRESSYL [Concomitant]
     Indication: ESSENTIAL HYPERTENSION
     Route: 048
  6. VERAPAMIL [Concomitant]
     Indication: ESSENTIAL HYPERTENSION
     Route: 048
  7. ALLOPURINOL [Concomitant]
  8. OROCAL [Concomitant]
  9. PROPOFOL [Concomitant]
  10. VOGALENE [Concomitant]
  11. SYMBICORT [Concomitant]

REACTIONS (2)
  - HAEMATOMA [None]
  - HAEMORRHAGIC STROKE [None]
